FAERS Safety Report 17377187 (Version 1)
Quarter: 2020Q1

REPORT INFORMATION
  Report Type: Spontaneous
  Country: US (occurrence: US)
  Receive Date: 20200205
  Receipt Date: 20200205
  Transmission Date: 20200409
  Serious: Yes (Death)
  Sender: FDA-Public Use
  Company Number: None

PATIENT
  Age: 66 Year
  Sex: Male

DRUGS (1)
  1. ENTYVIO [Suspect]
     Active Substance: VEDOLIZUMAB
     Indication: COLITIS ULCERATIVE
     Dosage: ?          OTHER ROUTE:INFUSION AT BAYLOR MEDICAL CENTER?
     Dates: start: 20160301, end: 20170501

REACTIONS (1)
  - T-cell lymphoma [None]

NARRATIVE: CASE EVENT DATE: 20160301
